FAERS Safety Report 8911092 (Version 1)
Quarter: 2012Q4

REPORT INFORMATION
  Report Type: 
  Country: US (occurrence: US)
  Receive Date: 20121116
  Receipt Date: 20121116
  Transmission Date: 20130627
  Serious: Yes (Other)
  Sender: FDA-Public Use
  Company Number: US-ASTELLAS-2012US011066

PATIENT
  Sex: Male

DRUGS (1)
  1. XTANDI [Suspect]
     Indication: PRODUCT USED FOR UNKNOWN INDICATION
     Dosage: 160 mg, UID/QD
     Route: 048
     Dates: start: 201210

REACTIONS (4)
  - Dyspnoea [Unknown]
  - Fluid retention [Unknown]
  - Urine output decreased [Unknown]
  - Oedema peripheral [Unknown]
